FAERS Safety Report 11737596 (Version 1)
Quarter: 2015Q4

REPORT INFORMATION
  Report Type: Spontaneous
  Country: US (occurrence: None)
  Receive Date: 20151112
  Receipt Date: 20151112
  Transmission Date: 20160304
  Serious: Yes (Other)
  Sender: FDA-Public Use
  Company Number: None

PATIENT
  Age: 2 Month
  Sex: Male
  Weight: 6.8 kg

DRUGS (2)
  1. BACTRIM [Suspect]
     Active Substance: SULFAMETHOXAZOLE\TRIMETHOPRIM
     Indication: CYST
     Route: 048
     Dates: start: 20151102, end: 20151104
  2. BACTRIM [Suspect]
     Active Substance: SULFAMETHOXAZOLE\TRIMETHOPRIM
     Indication: ANORECTAL DISORDER
     Route: 048
     Dates: start: 20151102, end: 20151104

REACTIONS (4)
  - Haematochezia [None]
  - Screaming [None]
  - Irritability [None]
  - Respiratory arrest [None]

NARRATIVE: CASE EVENT DATE: 20151104
